FAERS Safety Report 4971225-1 (Version None)
Quarter: 2006Q2

REPORT INFORMATION
  Report Type: 
  Country: None (occurrence: None)
  Receive Date: 20060413
  Receipt Date: 20050713
  Transmission Date: 20061013
  Serious: Yes (Hospitalization)
  Sender: FDA-Public Use
  Company Number: US-MERCK-0507USA01918

PATIENT
  Age: 61 Year
  Sex: Female
  Weight: 55 kg

DRUGS (8)
  1. VIOXX [Suspect]
     Indication: ARTHRITIS
     Route: 048
     Dates: start: 19991001, end: 20040709
  2. VIOXX [Suspect]
     Route: 048
     Dates: start: 19991001, end: 20040709
  3. CARDIZEM [Concomitant]
     Route: 065
  4. ZESTRIL [Concomitant]
     Route: 065
  5. HYDRODIURIL [Concomitant]
     Route: 065
  6. LIPITOR [Concomitant]
     Route: 065
  7. VIOXX [Suspect]
     Route: 048
     Dates: start: 19991001, end: 20040709
  8. ASPIRIN [Concomitant]
     Route: 065

REACTIONS (7)
  - ACUTE MYOCARDIAL INFARCTION [None]
  - ANGINA UNSTABLE [None]
  - CORONARY ARTERY DISEASE [None]
  - CYSTOCELE [None]
  - HYPERCHOLESTEROLAEMIA [None]
  - INFECTION [None]
  - PARAESTHESIA [None]
